FAERS Safety Report 13261644 (Version 2)
Quarter: 2017Q1

REPORT INFORMATION
  Report Type: Report from Study
  Country: AR (occurrence: AR)
  Receive Date: 20170222
  Receipt Date: 20170224
  Transmission Date: 20170428
  Serious: No
  Sender: FDA-Public Use
  Company Number: PHHY2017AR027674

PATIENT
  Sex: Female

DRUGS (1)
  1. DIOVAN [Suspect]
     Active Substance: VALSARTAN
     Indication: HYPERTENSION
     Dosage: 80 OT, QD
     Route: 065
     Dates: start: 2009

REACTIONS (4)
  - Memory impairment [Unknown]
  - Nervousness [Unknown]
  - Logorrhoea [Unknown]
  - Movement disorder [Unknown]
